FAERS Safety Report 23627062 (Version 1)
Quarter: 2024Q1

REPORT INFORMATION
  Report Type: Spontaneous
  Country: US (occurrence: None)
  Receive Date: 20240312
  Receipt Date: 20240312
  Transmission Date: 20240410
  Serious: Yes (Life-Threatening, Disabling, Other)
  Sender: FDA-Public Use
  Company Number: None

PATIENT
  Age: 45 Year
  Sex: Male
  Weight: 112.5 kg

DRUGS (7)
  1. SUBOXONE [Suspect]
     Active Substance: BUPRENORPHINE HYDROCHLORIDE\NALOXONE HYDROCHLORIDE
     Indication: Drug use disorder
     Dosage: OTHER QUANTITY : 2 STRIPS SUBLINGUAL;?FREQUENCY : DAILY;?
     Route: 048
     Dates: start: 20160731
  2. Metoprlol [Concomitant]
  3. LISINOPRIL [Concomitant]
  4. SERTRALINE [Concomitant]
  5. CRESTOR [Concomitant]
  6. SUBOXONE [Concomitant]
     Active Substance: BUPRENORPHINE HYDROCHLORIDE\NALOXONE HYDROCHLORIDE
  7. IBUPROFEN [Concomitant]

REACTIONS (3)
  - Depression [None]
  - Suicidal ideation [None]
  - Cold sweat [None]

NARRATIVE: CASE EVENT DATE: 20240216
